FAERS Safety Report 19680122 (Version 1)
Quarter: 2021Q3

REPORT INFORMATION
  Report Type: Spontaneous
  Country: US (occurrence: US)
  Receive Date: 20210810
  Receipt Date: 20210810
  Transmission Date: 20211014
  Serious: Yes (Hospitalization)
  Sender: FDA-Public Use
  Company Number: US-PROCTER_AND_GAMBLE-PH21006126

PATIENT
  Age: 57 Year
  Sex: Male

DRUGS (1)
  1. VICKS NYQUIL SEVERE COLD AND FLU [Suspect]
     Active Substance: ACETAMINOPHEN\DEXTROMETHORPHAN HYDROBROMIDE\DOXYLAMINE SUCCINATE\PHENYLEPHRINE
     Dosage: 1 DOSAGE FORM, 1 ONLY (STANDARD DOSAGE)
     Route: 048
     Dates: start: 20210727, end: 20210727

REACTIONS (4)
  - Loss of personal independence in daily activities [Not Recovered/Not Resolved]
  - Incoherent [Not Recovered/Not Resolved]
  - Gait disturbance [Not Recovered/Not Resolved]
  - Amnesia [Not Recovered/Not Resolved]

NARRATIVE: CASE EVENT DATE: 202107
